FAERS Safety Report 7416396-2 (Version None)
Quarter: 2011Q2

REPORT INFORMATION
  Report Type: 
  Country: None (occurrence: None)
  Receive Date: 20110414
  Receipt Date: 20110405
  Transmission Date: 20111010
  Serious: No
  Sender: FDA-Public Use
  Company Number: US-ASTRAZENECA-2010SE56427

PATIENT
  Age: 84 Year
  Sex: Female

DRUGS (4)
  1. DIOVAN [Concomitant]
  2. NEXIUM [Suspect]
     Route: 048
     Dates: start: 20100801
  3. PLAVIX [Concomitant]
  4. COREG [Concomitant]

REACTIONS (1)
  - OEDEMA PERIPHERAL [None]
